FAERS Safety Report 9461974 (Version 2)
Quarter: 2013Q3

REPORT INFORMATION
  Report Type: Spontaneous
  Country: GB (occurrence: GB)
  Receive Date: 20130816
  Receipt Date: 20130916
  Transmission Date: 20140515
  Serious: Yes (Other)
  Sender: FDA-Public Use
  Company Number: GB-PFIZER INC-2013235058

PATIENT
  Sex: Female

DRUGS (1)
  1. EFEXOR XL [Suspect]
     Dosage: 225 MG, UNK

REACTIONS (2)
  - Intentional overdose [Unknown]
  - Pre-eclampsia [Unknown]
